FAERS Safety Report 10210206 (Version 3)
Quarter: 2014Q3

REPORT INFORMATION
  Report Type: Spontaneous
  Country: IT (occurrence: None)
  Receive Date: 20140528
  Receipt Date: 20140807
  Transmission Date: 20150326
  Serious: Yes (Hospitalization)
  Sender: FDA-Public Use
  Company Number: AUR-APL-2014-06095

PATIENT
  Age: 70 Year
  Sex: Male

DRUGS (3)
  1. METFORMIN [Suspect]
     Active Substance: METFORMIN HYDROCHLORIDE
     Indication: DIABETES MELLITUS
     Dosage: (500 MG, 1 D)
     Route: 048
     Dates: start: 20000101, end: 20140521
  2. LANTUS [Suspect]
     Active Substance: INSULIN GLARGINE
     Indication: DIABETES MELLITUS
     Dosage: 100 U/ML SOLUZIONE INIETTABILE (15 DOSAGE FORMS, 1 D)
     Route: 058
     Dates: start: 20000101, end: 20140521
  3. APIDRA [Suspect]
     Active Substance: INSULIN GLULISINE
     Indication: DIABETES MELLITUS
     Dosage: (31 DOSAGE FORMS, 1 D)
     Route: 058
     Dates: start: 20000101, end: 20140521

REACTIONS (3)
  - Loss of consciousness [None]
  - Malaise [None]
  - Hypoglycaemia [None]

NARRATIVE: CASE EVENT DATE: 20130724
